FAERS Safety Report 10198631 (Version 2)
Quarter: 2017Q2

REPORT INFORMATION
  Report Type: Spontaneous
  Country: US (occurrence: US)
  Receive Date: 20140527
  Receipt Date: 20170602
  Transmission Date: 20170829
  Serious: No
  Sender: FDA-Public Use
  Company Number: US-NOVEN-13US008254

PATIENT

DRUGS (8)
  1. CLONIDINE HCL [Concomitant]
     Active Substance: CLONIDINE HYDROCHLORIDE
     Indication: SLEEP DISORDER
     Dosage: 1 MG, TWICE IN EVENING
  2. DAYTRANA [Suspect]
     Active Substance: METHYLPHENIDATE
     Dosage: 20 MG, UNKNOWN
     Route: 062
     Dates: start: 2014
  3. DAYTRANA [Suspect]
     Active Substance: METHYLPHENIDATE
     Indication: ATTENTION DEFICIT/HYPERACTIVITY DISORDER
     Dosage: 15 MG, QD
     Route: 062
  4. DAYTRANA [Suspect]
     Active Substance: METHYLPHENIDATE
     Dosage: 15 MG, QD
     Route: 062
     Dates: start: 20131115
  5. DAYTRANA [Suspect]
     Active Substance: METHYLPHENIDATE
     Dosage: 30 MG (20 MG + HALF CUT 20 MG PATCH TOGETHER), UNKNOWN
     Route: 062
     Dates: start: 20161015
  6. MELATONIN [Concomitant]
     Active Substance: MELATONIN
     Dosage: 3 MG, EVENING
  7. HYDROXYZINE [Concomitant]
     Active Substance: HYDROXYZINE HYDROCHLORIDE
     Dosage: 10 MG, UNK
  8. CARBAMAZEPINE. [Concomitant]
     Active Substance: CARBAMAZEPINE
     Indication: DEPRESSION
     Dosage: 300 MG, BID

REACTIONS (8)
  - Drug prescribing error [Unknown]
  - Incorrect product storage [Not Recovered/Not Resolved]
  - Wrong technique in product usage process [Not Recovered/Not Resolved]
  - Drug ineffective [Not Recovered/Not Resolved]
  - Product adhesion issue [Not Recovered/Not Resolved]
  - Drug administered at inappropriate site [Not Recovered/Not Resolved]
  - Off label use [Unknown]
  - Drug administration error [Not Recovered/Not Resolved]

NARRATIVE: CASE EVENT DATE: 2013
